FAERS Safety Report 19946287 (Version 4)
Quarter: 2022Q1

REPORT INFORMATION
  Report Type: Report from Study
  Country: NL (occurrence: NL)
  Receive Date: 20211013
  Receipt Date: 20220203
  Transmission Date: 20220423
  Serious: Yes (Other)
  Sender: FDA-Public Use
  Company Number: NL-ABBVIE-17P-114-1939301-00

PATIENT
  Age: 83 Year
  Sex: Female
  Weight: 83.3 kg

DRUGS (12)
  1. CARBIDOPA\LEVODOPA [Suspect]
     Active Substance: CARBIDOPA\LEVODOPA
     Indication: Parkinson^s disease
     Dosage: MD 7.8, CD: 2.0, ED: 2.0
     Route: 050
     Dates: start: 20140304
  2. CARBIDOPA\LEVODOPA [Suspect]
     Active Substance: CARBIDOPA\LEVODOPA
     Dosage: CD2.3?ED2.0?MD7.8
     Route: 050
  3. CARBIDOPA\LEVODOPA [Suspect]
     Active Substance: CARBIDOPA\LEVODOPA
     Dosage: MD: 7.8, CD: 2.3, ED: 2.5. NO MORNING DOSE FOR LONG TIME
     Route: 050
  4. CARBIDOPA\LEVODOPA [Suspect]
     Active Substance: CARBIDOPA\LEVODOPA
     Dosage: MD: 7.8, CD: 2.3, ED: 2.5?16 HOUR ADMINISTRATION
     Route: 050
  5. CARBIDOPA\LEVODOPA [Suspect]
     Active Substance: CARBIDOPA\LEVODOPA
     Dosage: CD DECREASED BY 0.1 ML/HR TO 2.2 ML/HR.
     Route: 050
  6. CARBIDOPA\LEVODOPA [Suspect]
     Active Substance: CARBIDOPA\LEVODOPA
     Dosage: CD 2.1 ML/HR CD DECREASED BY 0.1 ML/HR TO 4.1 ML/HR.CD 2.1, ED 2.5, MD 7.8
     Route: 050
  7. CARBIDOPA\LEVODOPA [Suspect]
     Active Substance: CARBIDOPA\LEVODOPA
     Route: 050
  8. CARBIDOPA\LEVODOPA [Suspect]
     Active Substance: CARBIDOPA\LEVODOPA
     Dosage: CD 2.1, ED 2.5, MD 7.8
     Route: 050
  9. CARBIDOPA\LEVODOPA [Suspect]
     Active Substance: CARBIDOPA\LEVODOPA
     Dosage: CD 2.5ML/H, ED 2.5ML, MD 7.8ML
     Route: 050
  10. CARBIDOPA\LEVODOPA [Suspect]
     Active Substance: CARBIDOPA\LEVODOPA
     Route: 050
  11. CARBIDOPA\LEVODOPA [Suspect]
     Active Substance: CARBIDOPA\LEVODOPA
     Route: 050
  12. BENSERAZIDE HYDROCHLORIDE\LEVODOPA [Concomitant]
     Active Substance: BENSERAZIDE HYDROCHLORIDE\LEVODOPA
     Indication: Product used for unknown indication
     Dosage: 3 FOR THE NIGHT

REACTIONS (39)
  - Carpal tunnel syndrome [Not Recovered/Not Resolved]
  - Nocturia [Not Recovered/Not Resolved]
  - Freezing phenomenon [Not Recovered/Not Resolved]
  - Weight increased [Not Recovered/Not Resolved]
  - Dyschezia [Not Recovered/Not Resolved]
  - Fibroma [Recovered/Resolved]
  - Memory impairment [Not Recovered/Not Resolved]
  - Fatigue [Not Recovered/Not Resolved]
  - Emotional disorder [Not Recovered/Not Resolved]
  - Hyperkinesia [Recovering/Resolving]
  - Posture abnormal [Not Recovered/Not Resolved]
  - Death of relative [Not Recovered/Not Resolved]
  - Bowel movement irregularity [Unknown]
  - Fall [Recovered/Resolved]
  - Dystonia [Not Recovered/Not Resolved]
  - Tremor [Not Recovered/Not Resolved]
  - On and off phenomenon [Not Recovered/Not Resolved]
  - Abnormal dreams [Not Recovered/Not Resolved]
  - Hallucination [Recovered/Resolved]
  - Therapeutic product effect incomplete [Not Recovered/Not Resolved]
  - Muscle rigidity [Not Recovered/Not Resolved]
  - Stoma site erythema [Recovering/Resolving]
  - Stoma site irritation [Recovering/Resolving]
  - Orthostatic hypotension [Not Recovered/Not Resolved]
  - Stoma site reaction [Not Recovered/Not Resolved]
  - Dyskinesia [Not Recovered/Not Resolved]
  - Gait disturbance [Not Recovered/Not Resolved]
  - Device issue [Unknown]
  - Stoma site extravasation [Recovered/Resolved]
  - Stoma site reaction [Recovered/Resolved]
  - Faeces hard [Not Recovered/Not Resolved]
  - Constipation [Not Recovered/Not Resolved]
  - Gastrointestinal disorder [Not Recovered/Not Resolved]
  - On and off phenomenon [Not Recovered/Not Resolved]
  - Fall [Not Recovered/Not Resolved]
  - Inappropriate schedule of product administration [Not Recovered/Not Resolved]
  - Dyskinesia [Not Recovered/Not Resolved]
  - Dizziness [Not Recovered/Not Resolved]
  - Fluid intake reduced [Not Recovered/Not Resolved]

NARRATIVE: CASE EVENT DATE: 20190801
